FAERS Safety Report 12325355 (Version 1)
Quarter: 2016Q2

REPORT INFORMATION
  Report Type: Spontaneous
  Country: US (occurrence: US)
  Receive Date: 20160502
  Receipt Date: 20160502
  Transmission Date: 20160815
  Serious: No
  Sender: FDA-Public Use
  Company Number: US-009507513-1604USA012269

PATIENT

DRUGS (1)
  1. ASMANEX [Suspect]
     Active Substance: MOMETASONE FUROATE
     Dosage: 220 MICROGRAM, FREQUENCY UNSPECIFIED
     Route: 055

REACTIONS (3)
  - Product impurity [Unknown]
  - No adverse event [Unknown]
  - Drug dose omission [Unknown]
